FAERS Safety Report 24121323 (Version 1)
Quarter: 2024Q3

REPORT INFORMATION
  Report Type: Spontaneous
  Country: US (occurrence: None)
  Receive Date: 20240718
  Receipt Date: 20240718
  Transmission Date: 20241017
  Serious: No
  Sender: Public
  Company Number: None

PATIENT
  Age: 34 Year
  Sex: Female
  Weight: 85.5 kg

DRUGS (2)
  1. SALONPAS LIDOCAINE PLUS [Suspect]
     Active Substance: BENZYL ALCOHOL\LIDOCAINE HYDROCHLORIDE
     Indication: Back pain
     Dosage: FREQUENCY : DAILY;?
     Route: 061
     Dates: start: 20240718, end: 20240718
  2. SALONPAS LIDOCAINE PLUS [Suspect]
     Active Substance: BENZYL ALCOHOL\LIDOCAINE HYDROCHLORIDE
     Indication: Muscle strain

REACTIONS (2)
  - Application site inflammation [None]
  - Application site pruritus [None]

NARRATIVE: CASE EVENT DATE: 20240718
